FAERS Safety Report 8533250-3 (Version None)
Quarter: 2012Q3

REPORT INFORMATION
  Report Type: 
  Country: None (occurrence: None)
  Receive Date: 20120724
  Receipt Date: 20120716
  Transmission Date: 20120928
  Serious: Yes (Death, Hospitalization)
  Sender: FDA-Public Use
  Company Number: GB-SANOFI-AVENTIS-2011SA083286

PATIENT
  Age: 69 Year
  Sex: Female

DRUGS (10)
  1. ASPIRIN [Concomitant]
  2. ATORVASTATIN [Concomitant]
     Dates: start: 20090101
  3. CALCIUM CARBONATE/SODIUM ALGINATE/SODIUM BICARBONATE [Concomitant]
     Dosage: AUTHORIZATION/APPLICATION NUMBER: PL04917/0021
  4. DENOSUMAB [Suspect]
     Indication: OSTEOPOROSIS
     Dosage: 60 MG, Q4MO
     Route: 058
     Dates: start: 20111116, end: 20111116
  5. OMEPRAZOLE [Concomitant]
     Dosage: DOSE: 20 (UNITS NOT REPORTED)
  6. PROCHLORPERAZINE [Concomitant]
     Indication: NAUSEA
     Route: 048
  7. CHLOROQUINE PHOSPHATE [Suspect]
     Indication: SARCOIDOSIS
     Route: 048
     Dates: start: 20050101
  8. PREDNISOLONE [Concomitant]
     Indication: SARCOIDOSIS
     Route: 048
     Dates: start: 20050101
  9. TRIMETHOPRIM [Concomitant]
     Indication: PROPHYLAXIS URINARY TRACT INFECTION
     Route: 048
  10. FUROSEMIDE [Concomitant]

REACTIONS (5)
  - ACUTE HEPATIC FAILURE [None]
  - DEATH [None]
  - RENAL FAILURE ACUTE [None]
  - GENERAL PHYSICAL HEALTH DETERIORATION [None]
  - MALAISE [None]
